FAERS Safety Report 7751673-7 (Version None)
Quarter: 2011Q3

REPORT INFORMATION
  Report Type: 
  Country: None (occurrence: None)
  Receive Date: 20110914
  Receipt Date: 20110908
  Transmission Date: 20111222
  Serious: Yes (Hospitalization)
  Sender: FDA-Public Use
  Company Number: JP-BRISTOL-MYERS SQUIBB COMPANY-16051427

PATIENT
  Age: 71 Year
  Sex: Male

DRUGS (1)
  1. CISPLATIN [Suspect]
     Indication: GLOTTIS CARCINOMA

REACTIONS (4)
  - POST PROCEDURAL HAEMORRHAGE [None]
  - TRACHEOSTOMY INFECTION [None]
  - NECROSIS [None]
  - POSTOPERATIVE WOUND INFECTION [None]
